FAERS Safety Report 24679921 (Version 1)
Quarter: 2024Q4

REPORT INFORMATION
  Report Type: Spontaneous
  Country: CN (occurrence: CN)
  Receive Date: 20241129
  Receipt Date: 20241129
  Transmission Date: 20250115
  Serious: Yes (Other)
  Sender: PAREXEL
  Company Number: CN-SHANGHAI JUNSHI BIOSCIENCES CO., LTD.-CN2024012207

PATIENT

DRUGS (3)
  1. TORIPALIMAB [Suspect]
     Active Substance: TORIPALIMAB
     Indication: Triple negative breast cancer
     Dosage: ADMINISTERED FOR 3 CYCLES
     Dates: start: 20240805, end: 20240915
  2. PACLITAXEL [Concomitant]
     Active Substance: PACLITAXEL
     Indication: Triple negative breast cancer
     Dosage: ADMINISTERED FOR 3 CYCLES
     Dates: start: 20240805, end: 20240915
  3. CISPLATIN [Concomitant]
     Active Substance: CISPLATIN
     Indication: Triple negative breast cancer
     Dosage: ADMINISTERED FOR 3 CYCLES
     Dates: start: 20240805, end: 20240915

REACTIONS (2)
  - Melaena [Unknown]
  - Rash [Unknown]
